FAERS Safety Report 10039019 (Version 3)
Quarter: 2014Q2

REPORT INFORMATION
  Report Type: Report from Study
  Country: US (occurrence: US)
  Receive Date: 20140326
  Receipt Date: 20140410
  Transmission Date: 20141212
  Serious: Yes (Hospitalization)
  Sender: FDA-Public Use
  Company Number: US-BRISTOL-MYERS SQUIBB COMPANY-20483376

PATIENT
  Age: 73 Year
  Sex: Male

DRUGS (11)
  1. DAPAGLIFLOZIN [Suspect]
     Indication: TYPE 2 DIABETES MELLITUS
     Dosage: LAST DOSE ON 11MAR2014.?DATE RESTARTED: 12MAR2014
     Dates: start: 20131209
  2. BLINDED: PLACEBO [Suspect]
     Indication: TYPE 2 DIABETES MELLITUS
     Dosage: LAST DOSE ON 11MAR2014.?RESTARTED: 12MAR2014
     Dates: start: 20131209
  3. METFORMIN HCL [Suspect]
     Indication: TYPE 2 DIABETES MELLITUS
     Dosage: ONGOING
     Route: 048
  4. AMARYL [Suspect]
     Indication: TYPE 2 DIABETES MELLITUS
     Dosage: ONGOING
     Route: 048
  5. NABUMETONE [Concomitant]
     Indication: OSTEOARTHRITIS
     Dosage: ONGOING
     Route: 048
  6. BENAZEPRIL HCL [Concomitant]
     Indication: HYPERTENSION
     Dosage: ONGOING
     Route: 048
  7. HYDROCHLOROTHIAZIDE [Concomitant]
     Indication: HYPERTENSION
     Dosage: ONGOING
     Route: 048
  8. AMLODIPINE [Concomitant]
     Indication: HYPERTENSION
     Dosage: ONGOING
     Route: 048
  9. FLOMAX [Concomitant]
     Indication: BENIGN PROSTATIC HYPERPLASIA
     Dosage: ONGOING
     Route: 048
  10. INDOCIN [Concomitant]
     Indication: GOUT
     Dosage: ONGOING
     Route: 048
  11. SIMVASTATIN [Concomitant]
     Dosage: ONGOING
     Route: 048

REACTIONS (1)
  - Chest pain [Not Recovered/Not Resolved]
